FAERS Safety Report 4435552-9 (Version None)
Quarter: 2004Q3

REPORT INFORMATION
  Report Type: 
  Country: None (occurrence: None)
  Receive Date: 20040826
  Receipt Date: 20040811
  Transmission Date: 20050211
  Serious: Yes (Other)
  Sender: FDA-Public Use
  Company Number: 2004-0007224

PATIENT
  Age: 65 Year
  Sex: Female
  Weight: 66 kg

DRUGS (6)
  1. VIREAD [Suspect]
     Indication: HIV INFECTION
     Dosage: 300 MG, 1 IN 1 D, INTRAVENOUS
     Route: 042
     Dates: start: 20030915, end: 20040707
  2. LAMIVUDINE (LAMIVUDINE) [Concomitant]
  3. L-THYROXINE (LEVOTHYROXINE)(25) [Concomitant]
  4. BACTRIM [Concomitant]
  5. FLUCONAZOLE (FLUCONAZOLE) (50) [Concomitant]
  6. KALETRA [Concomitant]

REACTIONS (2)
  - RENAL FAILURE [None]
  - TUBULOINTERSTITIAL NEPHRITIS [None]
